FAERS Safety Report 25549623 (Version 1)
Quarter: 2025Q3

REPORT INFORMATION
  Report Type: Spontaneous
  Country: PK (occurrence: PK)
  Receive Date: 20250714
  Receipt Date: 20250714
  Transmission Date: 20251020
  Serious: Yes (Death)
  Sender: PFIZER
  Company Number: PK-PFIZER INC-PV202500053731

PATIENT
  Age: 43 Year
  Sex: Female
  Weight: 40.5 kg

DRUGS (7)
  1. IBRANCE [Suspect]
     Active Substance: PALBOCICLIB
     Indication: Breast cancer metastatic
     Route: 048
     Dates: start: 20250315, end: 20250710
  2. ESSO [Concomitant]
     Dosage: 40 MG, 1X/DAY (TAKE ONE CAPSULE BEFORE BREAKFAST FOR 14 DAYS)
     Route: 048
  3. FEMARA [Concomitant]
     Active Substance: LETROZOLE
     Dosage: 2.5 MG, 1X/DAY (TAKE ONE TABLET ONCE A DAY FOR 2 MONTHS)
     Route: 048
  4. NUBEROL [Concomitant]
     Indication: Pain
     Route: 048
  5. SURBEX Z [Concomitant]
     Dosage: 1 DF, 1X/DAY (TAKE ONE TABLET ONCE A DAY FOR 2 MONTHS)
     Route: 048
  6. CHEWCAL [Concomitant]
     Dosage: 1 DF, 1X/DAY (TAKE ONE TABLET ONCE A DAY FOR 2 MONTHS)
     Route: 048
  7. LYSOVIT [Concomitant]
     Dosage: UNK, 1X/DAY (2 TSF)

REACTIONS (2)
  - Death [Fatal]
  - Heart rate increased [Unknown]

NARRATIVE: CASE EVENT DATE: 20250416
